FAERS Safety Report 18029134 (Version 3)
Quarter: 2021Q1

REPORT INFORMATION
  Report Type: Spontaneous
  Country: US (occurrence: US)
  Receive Date: 20200716
  Receipt Date: 20210315
  Transmission Date: 20210419
  Serious: Yes (Other)
  Sender: FDA-Public Use
  Company Number: US-GILEAD-2020-0477388

PATIENT
  Age: 40 Year
  Sex: Female

DRUGS (4)
  1. TRUVADA [Suspect]
     Active Substance: EMTRICITABINE\TENOFOVIR DISOPROXIL FUMARATE
     Indication: HIV INFECTION
     Dosage: UNK
     Route: 048
     Dates: start: 200907
  2. DESCOVY [Concomitant]
     Active Substance: EMTRICITABINE\TENOFOVIR ALAFENAMIDE FUMARATE
  3. TRUVADA [Suspect]
     Active Substance: EMTRICITABINE\TENOFOVIR DISOPROXIL FUMARATE
     Dosage: UNK
     Route: 065
     Dates: start: 20170727, end: 20200106
  4. ATRIPLA [Suspect]
     Active Substance: EFAVIRENZ\EMTRICITABINE\TENOFOVIR DISOPROXIL FUMARATE
     Indication: HIV INFECTION
     Dosage: UNK
     Route: 048
     Dates: start: 200907

REACTIONS (12)
  - Anhedonia [Unknown]
  - Tooth loss [Not Recovered/Not Resolved]
  - Bone density abnormal [Not Recovered/Not Resolved]
  - Osteopenia [Not Recovered/Not Resolved]
  - Economic problem [Unknown]
  - Anxiety [Unknown]
  - Fracture [Not Recovered/Not Resolved]
  - Multiple fractures [Unknown]
  - Chronic kidney disease [Unknown]
  - Emotional distress [Unknown]
  - Pain [Unknown]
  - Bone density decreased [Unknown]

NARRATIVE: CASE EVENT DATE: 20180327
